FAERS Safety Report 16078452 (Version 2)
Quarter: 2019Q2

REPORT INFORMATION
  Report Type: Spontaneous
  Country: BR (occurrence: BR)
  Receive Date: 20190315
  Receipt Date: 20190403
  Transmission Date: 20190711
  Serious: Yes (Hospitalization, Other)
  Sender: FDA-Public Use
  Company Number: BR-SA-2019SA070163

PATIENT
  Age: 62 Year
  Sex: Male
  Weight: 80 kg

DRUGS (11)
  1. METFORMIN [Concomitant]
     Active Substance: METFORMIN HYDROCHLORIDE
     Indication: DIABETES MELLITUS
     Dosage: 3 DF, TID
     Route: 048
  2. GARDENAL SODIUM [Concomitant]
     Active Substance: PHENOBARBITAL
     Indication: SYNCOPE
     Dosage: 1 DF, QD
     Route: 048
  3. AAS [Concomitant]
     Active Substance: ASPIRIN
     Dosage: UNKNOWN
     Route: 065
  4. NESINA [Concomitant]
     Active Substance: ALOGLIPTIN BENZOATE
     Dosage: UNKNOWN
     Route: 065
  5. QUETIAPINE. [Concomitant]
     Active Substance: QUETIAPINE
     Dosage: UNKNOWN
     Route: 065
  6. LANTUS [Suspect]
     Active Substance: INSULIN GLARGINE
     Indication: BLOOD GLUCOSE INCREASED
     Dosage: 10 IU IN THE MORNING; 6 IU AT NIGHT
     Route: 058
  7. VENLAFAXINE HYDROCHLORIDE. [Concomitant]
     Active Substance: VENLAFAXINE HYDROCHLORIDE
     Indication: DEPRESSION
     Dosage: 1 DF, QD
     Route: 048
     Dates: start: 2016
  8. SIMVASTATIN. [Concomitant]
     Active Substance: SIMVASTATIN
     Indication: BLOOD CHOLESTEROL
     Dosage: 1 DF
     Route: 048
     Dates: start: 2018
  9. CITONEURIN [CYANOCOBALAMIN;PYRIDOXINE HYDROCHLORIDE;THIAMINE HYDROCHLO [Concomitant]
     Indication: MULTI-VITAMIN DEFICIENCY
     Dosage: UNK
     Route: 048
     Dates: start: 201902
  10. LOSARTAN POTASSIUM. [Concomitant]
     Active Substance: LOSARTAN POTASSIUM
     Indication: BLOOD CHOLESTEROL
     Dosage: 50 MG, QD
     Route: 048
  11. LISPRO INSULIN [Concomitant]
     Active Substance: INSULIN LISPRO
     Dosage: UNKNOWN
     Route: 065

REACTIONS (13)
  - Apparent death [Unknown]
  - Benign prostatic hyperplasia [Unknown]
  - Swelling face [Unknown]
  - Injury [Unknown]
  - Rib fracture [Unknown]
  - Lower limb fracture [Unknown]
  - Diabetes mellitus inadequate control [Unknown]
  - Prostatic operation [Unknown]
  - Inappropriate schedule of product administration [Unknown]
  - Fall [Unknown]
  - Memory impairment [Unknown]
  - Head injury [Unknown]
  - Blood glucose increased [Unknown]

NARRATIVE: CASE EVENT DATE: 2010
